FAERS Safety Report 16071040 (Version 1)
Quarter: 2019Q1

REPORT INFORMATION
  Report Type: Spontaneous
  Country: US (occurrence: US)
  Receive Date: 20190314
  Receipt Date: 20190314
  Transmission Date: 20190418
  Serious: No
  Sender: FDA-Public Use
  Company Number: US-009507513-1903USA004193

PATIENT
  Age: 61 Year

DRUGS (5)
  1. NORVASC [Suspect]
     Active Substance: AMLODIPINE BESYLATE
     Dosage: 10 MILLIGRAM
     Route: 048
     Dates: start: 2018
  2. NORVASC [Suspect]
     Active Substance: AMLODIPINE BESYLATE
     Dosage: LITTLE PIECE YESTERDAY
     Dates: start: 20190127
  3. PRINIVIL [Suspect]
     Active Substance: LISINOPRIL
     Dosage: UNK
     Dates: start: 2019
  4. PRINIVIL [Suspect]
     Active Substance: LISINOPRIL
     Indication: POLYURIA
     Dosage: 40 MILLIGRAM
     Dates: start: 2018, end: 2018
  5. NORVASC [Suspect]
     Active Substance: AMLODIPINE BESYLATE
     Dosage: PIECE TODAY
     Dates: start: 20190128

REACTIONS (4)
  - Peripheral swelling [Unknown]
  - Wrong technique in product usage process [Unknown]
  - Hypertension [Unknown]
  - Oedema [Unknown]

NARRATIVE: CASE EVENT DATE: 20190127
